FAERS Safety Report 5188523-1 (Version None)
Quarter: 2006Q4

REPORT INFORMATION
  Report Type: 
  Country: None (occurrence: None)
  Receive Date: 20061221
  Receipt Date: 20061218
  Transmission Date: 20070319
  Serious: Yes (Death)
  Sender: FDA-Public Use
  Company Number: CH-JNJFOC-20061203693

PATIENT
  Sex: Male

DRUGS (4)
  1. REMINYL [Suspect]
     Indication: DEMENTIA
     Route: 048
  2. ASPIRIN [Concomitant]
     Route: 048
  3. NITRO-DUR [Concomitant]
     Route: 062
  4. ZYPREXA [Concomitant]

REACTIONS (1)
  - DEATH [None]
